FAERS Safety Report 18706062 (Version 1)
Quarter: 2021Q1

REPORT INFORMATION
  Report Type: Spontaneous
  Country: US (occurrence: US)
  Receive Date: 20210105
  Receipt Date: 20210105
  Transmission Date: 20210419
  Serious: Yes (Hospitalization)
  Sender: FDA-Public Use
  Company Number: None

PATIENT
  Age: 60 Year
  Sex: Female

DRUGS (19)
  1. GRANIX [Suspect]
     Active Substance: TBO-FILGRASTIM
     Indication: PROSTATE CANCER
     Route: 058
  2. NORCO [Concomitant]
     Active Substance: ACETAMINOPHEN\HYDROCODONE BITARTRATE
  3. CRESEMBA [Concomitant]
     Active Substance: ISAVUCONAZONIUM SULFATE
  4. FAMOTIDINE. [Concomitant]
     Active Substance: FAMOTIDINE
  5. NEURONTIN [Concomitant]
     Active Substance: GABAPENTIN
  6. LASIX [Concomitant]
     Active Substance: FUROSEMIDE
  7. FOLIC ACID. [Concomitant]
     Active Substance: FOLIC ACID
  8. ADIPRA [Concomitant]
  9. METOPROLOL. [Concomitant]
     Active Substance: METOPROLOL
  10. PRAVASTATIN. [Concomitant]
     Active Substance: PRAVASTATIN
  11. LOVENOX [Concomitant]
     Active Substance: ENOXAPARIN SODIUM
  12. CETIRIZINE [Concomitant]
     Active Substance: CETIRIZINE HYDROCHLORIDE
  13. LANTUS [Concomitant]
     Active Substance: INSULIN GLARGINE
  14. MORPHINE [Concomitant]
     Active Substance: MORPHINE
  15. ALLOPURINOL. [Concomitant]
     Active Substance: ALLOPURINOL
  16. PROVENTIL [Concomitant]
     Active Substance: ALBUTEROL
  17. AMLODIPINE [Concomitant]
     Active Substance: AMLODIPINE BESYLATE
  18. HUMULIN NOS [Concomitant]
     Active Substance: INSULIN HUMAN
  19. VITAMIN D3 [Concomitant]
     Active Substance: CHOLECALCIFEROL

REACTIONS (2)
  - Blood calcium decreased [None]
  - Seizure [None]

NARRATIVE: CASE EVENT DATE: 20201225
